FAERS Safety Report 7747742-8 (Version None)
Quarter: 2011Q3

REPORT INFORMATION
  Report Type: 
  Country: None (occurrence: None)
  Receive Date: 20110913
  Receipt Date: 20110902
  Transmission Date: 20111222
  Serious: Yes (Other)
  Sender: FDA-Public Use
  Company Number: CHPA2011US11929

PATIENT
  Age: 70 Year
  Sex: Female

DRUGS (2)
  1. PERDIEM OVERNIGHT RELIEF PILLS [Suspect]
     Indication: IRRITABLE BOWEL SYNDROME
     Dosage: 2 DF, QD
     Route: 048
  2. PERDIEM FIBER [Suspect]
     Indication: IRRITABLE BOWEL SYNDROME
     Dosage: 1 TSP, QD
     Route: 048

REACTIONS (3)
  - DIABETES MELLITUS [None]
  - INCORRECT DRUG ADMINISTRATION DURATION [None]
  - OFF LABEL USE [None]
